FAERS Safety Report 9220486 (Version 1)
Quarter: 2013Q2

REPORT INFORMATION
  Report Type: Report from Study
  Country: JP (occurrence: JP)
  Receive Date: 20130409
  Receipt Date: 20130409
  Transmission Date: 20140414
  Serious: Yes (Death, Hospitalization)
  Sender: FDA-Public Use
  Company Number: PHHO2005JP02327

PATIENT
  Age: 75 Year
  Sex: Male
  Weight: 37 kg

DRUGS (5)
  1. CGP 57148B [Suspect]
     Indication: GASTROINTESTINAL STROMAL TUMOUR
     Dosage: 300 MG, QD
     Route: 048
     Dates: start: 20040114, end: 20040208
  2. CGP 57148B [Suspect]
     Dosage: 200 MG, QD
     Route: 048
     Dates: start: 20040322, end: 20040421
  3. CGP 57148B [Suspect]
     Dosage: 300 MG, QD
     Route: 048
     Dates: start: 20040422, end: 20040514
  4. CGP 57148B [Suspect]
     Dosage: 300 MG, QD
     Route: 048
     Dates: start: 20040622, end: 20041231
  5. NITRODERM TTS [Concomitant]
     Indication: ANGINA PECTORIS
     Dosage: UNK UKN, UNK
     Route: 062
     Dates: start: 20040521

REACTIONS (3)
  - Cardio-respiratory arrest [Fatal]
  - Pyelonephritis [Recovering/Resolving]
  - Dehydration [Recovering/Resolving]
